FAERS Safety Report 4832773-8 (Version None)
Quarter: 2005Q4

REPORT INFORMATION
  Report Type: 
  Country: None (occurrence: None)
  Receive Date: 20051121
  Receipt Date: 20050916
  Transmission Date: 20060501
  Serious: Yes (Hospitalization)
  Sender: FDA-Public Use
  Company Number: PHNU2005DE03182

PATIENT
  Sex: Male
  Weight: 62 kg

DRUGS (4)
  1. ESIDRIX [Suspect]
     Indication: OSTEOPOROSIS
     Dosage: 25 MG/D
     Route: 048
     Dates: start: 19970623
  2. CALCIUM GLUCONATE [Concomitant]
     Indication: OSTEOPOROSIS
     Dates: start: 19990101
  3. FOSAMAX [Concomitant]
     Indication: OSTEOPOROSIS
     Dosage: 10 MG/D
     Dates: start: 19980904
  4. ANTIINFLAMMATORY/ANTIRHEUMATIC NON-STEROIDS [Concomitant]
     Dosage: UNK, PRN

REACTIONS (1)
  - SYNCOPE [None]
